FAERS Safety Report 8956981 (Version 1)
Quarter: 2012Q4

REPORT INFORMATION
  Report Type: Spontaneous
  Country: US (occurrence: None)
  Receive Date: 20121205
  Receipt Date: 20121205
  Transmission Date: 20130627
  Serious: Yes (Hospitalization)
  Sender: FDA-Public Use
  Company Number: None

PATIENT
  Sex: Male
  Weight: 68.04 kg

DRUGS (1)
  1. ATORVASTATIN [Suspect]
     Indication: DYSLIPIDEMIA
     Route: 048
     Dates: start: 20120101, end: 20121116

REACTIONS (3)
  - Gastrointestinal haemorrhage [None]
  - Haemorrhoids [None]
  - Diverticulitis [None]
